FAERS Safety Report 8002745-3 (Version None)
Quarter: 2011Q4

REPORT INFORMATION
  Report Type: 
  Country: None (occurrence: None)
  Receive Date: 20111220
  Receipt Date: 20111205
  Transmission Date: 20120403
  Serious: Yes (Hospitalization)
  Sender: FDA-Public Use
  Company Number: DSJ-2011-17061

PATIENT
  Age: 64 Year
  Sex: Male

DRUGS (5)
  1. GLIMEPIRIDE (GLIMEPIRIDE)(GLIMEPIRIDE) [Concomitant]
  2. CLOPIDOGREL (CLOPIDOGREL)(CLOPIDOGREL) [Concomitant]
  3. METFORMIN HCL [Concomitant]
  4. BENICAR ANLO(OLMESARTAN MEDOXOMIL, AMLODIPINE BESILATE)(TABLET)(OLMES [Suspect]
     Indication: HYPERTENSION
     Dosage: 40/5 MG (1 IN 1 D),PER ORAL, 20/5 MG (1 IN 1 D),PER ORAL
     Route: 048
     Dates: start: 20110101
  5. BENICAR ANLO(OLMESARTAN MEDOXOMIL, AMLODIPINE BESILATE)(TABLET)(OLMES [Suspect]
     Indication: HYPERTENSION
     Dosage: 40/5 MG (1 IN 1 D),PER ORAL, 20/5 MG (1 IN 1 D),PER ORAL
     Route: 048
     Dates: start: 20090101, end: 20110101

REACTIONS (2)
  - HYPOTENSION [None]
  - ANGIOPLASTY [None]
